FAERS Safety Report 5118208-9 (Version None)
Quarter: 2006Q4

REPORT INFORMATION
  Report Type: 
  Country: None (occurrence: None)
  Receive Date: 20061002
  Receipt Date: 20060328
  Transmission Date: 20070319
  Serious: Yes (Hospitalization)
  Sender: FDA-Public Use
  Company Number: US-BRISTOL-MYERS SQUIBB COMPANY-13329115

PATIENT
  Age: 72 Year
  Sex: Male

DRUGS (2)
  1. ORENCIA [Suspect]
     Indication: RHEUMATOID ARTHRITIS
     Route: 042
     Dates: start: 20060328, end: 20060328
  2. PREDNISONE [Concomitant]

REACTIONS (3)
  - BLOOD PRESSURE DECREASED [None]
  - DYSPNOEA [None]
  - RASH [None]
